FAERS Safety Report 21878178 (Version 1)
Quarter: 2023Q1

REPORT INFORMATION
  Report Type: Report from Study
  Country: CA (occurrence: CA)
  Receive Date: 20230118
  Receipt Date: 20230118
  Transmission Date: 20230418
  Serious: Yes (Other)
  Sender: FDA-Public Use
  Company Number: CA-JNJFOC-20230120583

PATIENT
  Age: 54 Year
  Sex: Male
  Weight: 84 kg

DRUGS (1)
  1. SIMPONI [Suspect]
     Active Substance: GOLIMUMAB
     Indication: Psoriatic arthropathy
     Dosage: 50MG/4ML
     Route: 041

REACTIONS (1)
  - Wound abscess [Not Recovered/Not Resolved]

NARRATIVE: CASE EVENT DATE: 20221229
